FAERS Safety Report 4883316-4 (Version None)
Quarter: 2006Q1

REPORT INFORMATION
  Report Type: 
  Country: None (occurrence: None)
  Receive Date: 20060118
  Receipt Date: 20060113
  Transmission Date: 20060701
  Serious: Yes (Other)
  Sender: FDA-Public Use
  Company Number: US-GLAXOSMITHKLINE-A0589230A

PATIENT
  Age: 15 Year
  Sex: Female

DRUGS (4)
  1. WELLBUTRIN SR [Suspect]
     Indication: DEPRESSION
     Dosage: 150MG PER DAY
     Route: 048
  2. PROZAC [Concomitant]
  3. MIRTAZAPINE [Concomitant]
  4. BENADRYL [Concomitant]

REACTIONS (10)
  - ANXIETY [None]
  - BLADDER DISORDER [None]
  - BURNING SENSATION [None]
  - CONFUSIONAL STATE [None]
  - DECREASED INTEREST [None]
  - DRUG WITHDRAWAL SYNDROME [None]
  - DYSPNOEA [None]
  - RASH [None]
  - SELF MUTILATION [None]
  - SUICIDAL IDEATION [None]
